FAERS Safety Report 4689161-7 (Version None)
Quarter: 2005Q2

REPORT INFORMATION
  Report Type: 
  Country: None (occurrence: None)
  Receive Date: 20050613
  Receipt Date: 20050531
  Transmission Date: 20051028
  Serious: Yes (Other)
  Sender: FDA-Public Use
  Company Number: 2005GB01081

PATIENT
  Age: 29 Year
  Sex: Female

DRUGS (5)
  1. BUPIVACAINE [Suspect]
     Indication: ANAESTHESIA
     Route: 008
  2. FENTANYL [Suspect]
     Indication: ANAESTHESIA
     Route: 008
  3. LIDOCAINE [Suspect]
     Indication: ANAESTHESIA
     Route: 008
  4. LEVOBUPIVACAINE [Suspect]
     Indication: ANAESTHESIA
     Route: 008
  5. EPHEDRINE SUL CAP [Suspect]
     Indication: HYPOTENSION
     Route: 065

REACTIONS (12)
  - AGITATION [None]
  - BLINDNESS TRANSIENT [None]
  - CAESAREAN SECTION [None]
  - CEREBRAL THROMBOSIS [None]
  - ECLAMPSIA [None]
  - GRAND MAL CONVULSION [None]
  - HAEMORRHAGE [None]
  - HEADACHE [None]
  - HYPOTENSION [None]
  - IRRITABILITY [None]
  - LUMBAR PUNCTURE HEADACHE [None]
  - PYREXIA [None]
